FAERS Safety Report 8002104-3 (Version None)
Quarter: 2011Q4

REPORT INFORMATION
  Report Type: 
  Country: None (occurrence: None)
  Receive Date: 20111222
  Receipt Date: 20111219
  Transmission Date: 20120403
  Serious: Yes (Other)
  Sender: FDA-Public Use
  Company Number: US-PFIZER INC-2011303242

PATIENT
  Sex: Female

DRUGS (1)
  1. CHANTIX [Suspect]
     Indication: SMOKING CESSATION THERAPY
     Dosage: UNK
     Route: 048
     Dates: start: 20111201

REACTIONS (7)
  - ANXIETY [None]
  - STRESS [None]
  - CRYING [None]
  - MALAISE [None]
  - COUGH [None]
  - EMOTIONAL DISORDER [None]
  - WITHDRAWAL SYNDROME [None]
